FAERS Safety Report 19920434 (Version 1)
Quarter: 2021Q4

REPORT INFORMATION
  Report Type: Spontaneous
  Country: US (occurrence: US)
  Receive Date: 20211006
  Receipt Date: 20211006
  Transmission Date: 20220303
  Serious: Yes (Other)
  Sender: FDA-Public Use
  Company Number: US-MLMSERVICE-20210917-3111940-1

PATIENT
  Age: 44 Year
  Sex: Male

DRUGS (1)
  1. HEPARIN [Suspect]
     Active Substance: HEPARIN SODIUM
     Indication: Renal stone removal
     Dosage: UNKNOWN
     Route: 065

REACTIONS (6)
  - Dizziness [Unknown]
  - Cerebral venous sinus thrombosis [Unknown]
  - Photophobia [Unknown]
  - Visual acuity reduced [Unknown]
  - Heparin-induced thrombocytopenia [Unknown]
  - Thunderclap headache [Unknown]
